FAERS Safety Report 4945196-8 (Version None)
Quarter: 2006Q1

REPORT INFORMATION
  Report Type: 
  Country: None (occurrence: None)
  Receive Date: 20060117
  Receipt Date: 20051028
  Transmission Date: 20060701
  Serious: Yes (Other)
  Sender: FDA-Public Use
  Company Number: A03200503617

PATIENT
  Age: 60 Year
  Sex: Female
  Weight: 59.86 kg

DRUGS (6)
  1. PLAVIX [Suspect]
     Indication: CARDIOVASCULAR DISORDER
     Dosage: 75 MG QD - ORAL
     Route: 048
     Dates: start: 20030101
  2. PLAVIX [Suspect]
     Indication: THROMBOSIS
     Dosage: 75 MG QD - ORAL
     Route: 048
     Dates: start: 20030101
  3. ACETYLSALICYLIC ACID SRT [Concomitant]
  4. ATENOLOL [Concomitant]
  5. OXAZEPAM [Concomitant]
  6. .. [Concomitant]

REACTIONS (1)
  - DRUG INEFFECTIVE [None]
